FAERS Safety Report 18201804 (Version 3)
Quarter: 2020Q3

REPORT INFORMATION
  Report Type: Spontaneous
  Country: IT (occurrence: IT)
  Receive Date: 20200827
  Receipt Date: 20200923
  Transmission Date: 20201103
  Serious: Yes (Death, Hospitalization, Other)
  Sender: FDA-Public Use
  Company Number: IT-009507513-2008ITA012045

PATIENT
  Age: 52 Year
  Sex: Male

DRUGS (2)
  1. NOXAFIL [Suspect]
     Active Substance: POSACONAZOLE
     Indication: INFECTION PROPHYLAXIS
     Dosage: 3 DOSAGE FORM, QD
     Route: 065
  2. GILTERITINIB [Interacting]
     Active Substance: GILTERITINIB
     Indication: ACUTE MYELOID LEUKAEMIA
     Dosage: 120 MG, QD
     Route: 065
     Dates: start: 20200428, end: 20200525

REACTIONS (5)
  - Drug interaction [Unknown]
  - Differentiation syndrome [Recovered/Resolved]
  - Myocardial infarction [Fatal]
  - Pulmonary oedema [Recovered/Resolved]
  - Electrocardiogram QT prolonged [Recovered/Resolved]

NARRATIVE: CASE EVENT DATE: 20200525
